FAERS Safety Report 25346220 (Version 1)
Quarter: 2025Q2

REPORT INFORMATION
  Report Type: Spontaneous
  Country: US (occurrence: US)
  Receive Date: 20250522
  Receipt Date: 20250522
  Transmission Date: 20250716
  Serious: No
  Sender: ABBVIE
  Company Number: US-ABBVIE-6291620

PATIENT
  Sex: Male

DRUGS (1)
  1. HUMIRA [Suspect]
     Active Substance: ADALIMUMAB
     Indication: Product used for unknown indication
     Route: 058

REACTIONS (5)
  - Illness [Unknown]
  - Diarrhoea haemorrhagic [Unknown]
  - Therapeutic product effect decreased [Not Recovered/Not Resolved]
  - Muscle spasms [Unknown]
  - Drug resistance [Unknown]
